FAERS Safety Report 6696540-5 (Version None)
Quarter: 2010Q2

REPORT INFORMATION
  Report Type: 
  Country: None (occurrence: None)
  Receive Date: 20100426
  Receipt Date: 20100414
  Transmission Date: 20101027
  Serious: Yes (Other)
  Sender: FDA-Public Use
  Company Number: US-JNJFOC-20100405321

PATIENT
  Age: 55 Year
  Sex: Female
  Weight: 131.54 kg

DRUGS (8)
  1. MOTRIN IB [Suspect]
     Route: 048
  2. MOTRIN IB [Suspect]
     Indication: PAIN
     Dosage: 400 MG ^EVERY 8-10 HOURS^
     Route: 048
  3. TYLENOL 8 HOUR MUSCLE + PAIN [Suspect]
     Indication: PAIN
     Dosage: 1300 MG ^EVERY 8-10 HOURS^
     Route: 048
  4. TYLENOL 8 HOUR MUSCLE + PAIN [Suspect]
     Indication: MYALGIA
     Dosage: 1300 MG ^EVERY 8-10 HOURS^
     Route: 048
  5. BENICAR [Concomitant]
     Indication: HYPERTENSION
  6. METOPROLOL [Concomitant]
     Indication: HYPERTENSION
  7. HUMULIN INSULIN [Concomitant]
     Indication: DIABETES MELLITUS
  8. METFORMIN [Concomitant]
     Indication: DIABETES MELLITUS

REACTIONS (4)
  - GASTRIC ULCER [None]
  - GASTRITIS [None]
  - MYALGIA [None]
  - PRODUCT QUALITY ISSUE [None]
